FAERS Safety Report 5684329-5 (Version None)
Quarter: 2008Q1

REPORT INFORMATION
  Report Type: 
  Country: None (occurrence: None)
  Receive Date: 20080328
  Receipt Date: 20080320
  Transmission Date: 20080703
  Serious: Yes (Other)
  Sender: FDA-Public Use
  Company Number: B0360834A

PATIENT
  Sex: Female

DRUGS (3)
  1. PAROXETINE HCL [Suspect]
     Indication: DEPRESSION
     Route: 065
     Dates: start: 20010410
  2. SERTRALINE [Concomitant]
     Dates: start: 19970320
  3. FLUOXETINE [Concomitant]
     Dates: start: 19980616

REACTIONS (12)
  - ABDOMINAL PAIN UPPER [None]
  - ANXIETY [None]
  - DEPRESSION [None]
  - DISTURBANCE IN ATTENTION [None]
  - DIZZINESS [None]
  - DRUG WITHDRAWAL SYNDROME [None]
  - HEADACHE [None]
  - LOSS OF LIBIDO [None]
  - MEMORY IMPAIRMENT [None]
  - NAUSEA [None]
  - SUICIDAL IDEATION [None]
  - TEARFULNESS [None]
